APPROVED DRUG PRODUCT: VYVANSE
Active Ingredient: LISDEXAMFETAMINE DIMESYLATE
Strength: 10MG
Dosage Form/Route: TABLET, CHEWABLE;ORAL
Application: N208510 | Product #001 | TE Code: AB
Applicant: TAKEDA PHARMACEUTICALS USA INC
Approved: Jan 28, 2017 | RLD: Yes | RS: No | Type: RX